FAERS Safety Report 6255298-4 (Version None)
Quarter: 2009Q3

REPORT INFORMATION
  Report Type: 
  Country: None (occurrence: None)
  Receive Date: 20090702
  Receipt Date: 20090629
  Transmission Date: 20100115
  Serious: Yes (Death)
  Sender: FDA-Public Use
  Company Number: US-CELGENEUS-163-21880-09010845

PATIENT
  Sex: Female

DRUGS (4)
  1. REVLIMID [Suspect]
     Indication: MULTIPLE MYELOMA
     Route: 048
     Dates: start: 20090101
  2. REVLIMID [Suspect]
     Route: 048
     Dates: start: 20081101, end: 20081201
  3. REVLIMID [Suspect]
     Route: 048
     Dates: start: 20080901, end: 20081001
  4. REVLIMID [Suspect]
     Route: 048
     Dates: start: 20080801, end: 20080901

REACTIONS (3)
  - DEATH [None]
  - FULL BLOOD COUNT DECREASED [None]
  - HEARING IMPAIRED [None]
